FAERS Safety Report 14540829 (Version 1)
Quarter: 2018Q1

REPORT INFORMATION
  Report Type: Spontaneous
  Country: GB (occurrence: GB)
  Receive Date: 20180216
  Receipt Date: 20180216
  Transmission Date: 20180509
  Serious: Yes (Life-Threatening, Hospitalization, Other)
  Sender: FDA-Public Use
  Company Number: GB-OTSUKA-DJ20080601

PATIENT

DRUGS (8)
  1. PHENYTOIN. [Suspect]
     Active Substance: PHENYTOIN
     Indication: SEIZURE
     Route: 042
     Dates: start: 20080204, end: 20080204
  2. PHENYTOIN. [Suspect]
     Active Substance: PHENYTOIN
     Indication: SEIZURE
     Route: 042
     Dates: start: 20080207, end: 200802
  3. DIAZEPAM. [Suspect]
     Active Substance: DIAZEPAM
     Route: 048
     Dates: start: 20080105, end: 20080204
  4. DIAZEPAM. [Suspect]
     Active Substance: DIAZEPAM
     Route: 048
     Dates: start: 20080207
  5. ABILIFY [Suspect]
     Active Substance: ARIPIPRAZOLE
     Route: 048
     Dates: start: 20080112, end: 20080117
  6. ABILIFY [Suspect]
     Active Substance: ARIPIPRAZOLE
     Route: 048
     Dates: start: 20080118, end: 20080204
  7. SULPRIDE [Concomitant]
     Active Substance: SULPIRIDE
     Route: 065
     Dates: start: 20080206
  8. PHENYTOIN. [Suspect]
     Active Substance: PHENYTOIN
     Route: 048
     Dates: start: 200802

REACTIONS (3)
  - Status epilepticus [Unknown]
  - Seizure [Recovered/Resolved]
  - Respiratory arrest [Unknown]

NARRATIVE: CASE EVENT DATE: 20080204
